FAERS Safety Report 10577367 (Version 1)
Quarter: 2014Q4

REPORT INFORMATION
  Report Type: Spontaneous
  Country: ES (occurrence: ES)
  Receive Date: 20141111
  Receipt Date: 20141111
  Transmission Date: 20150529
  Serious: Yes (Death)
  Sender: FDA-Public Use
  Company Number: ES-SA-2014SA151414

PATIENT
  Age: 83 Year
  Sex: Female

DRUGS (10)
  1. SINTROM [Concomitant]
     Active Substance: ACENOCOUMAROL
     Indication: ATRIAL FIBRILLATION
     Route: 048
     Dates: start: 2010, end: 20140515
  2. ADIRO [Concomitant]
     Active Substance: ASPIRIN
     Dosage: STRENGTH-100 MG 1 TABLET WITH FOOD
  3. ARICEPT [Concomitant]
     Active Substance: DONEPEZIL HYDROCHLORIDE
     Dosage: 10 MG 1 TABLET WITH DINNER
  4. ALDACTONE [Suspect]
     Active Substance: SPIRONOLACTONE
     Indication: CARDIAC FAILURE CONGESTIVE
     Dosage: 25 MG 1 CP EN DESAYUNO
     Route: 048
     Dates: start: 201404, end: 20140515
  5. LEVOTHYROXINE [Concomitant]
     Active Substance: LEVOTHYROXINE
  6. OMEPRAZOLE. [Concomitant]
     Active Substance: OMEPRAZOLE
     Dosage: 40 MG 1 TABLET 15 MINUTES BEFORE BREAKFAST
  7. SEGURIL [Suspect]
     Active Substance: FUROSEMIDE
     Indication: CARDIAC FAILURE CONGESTIVE
     Dosage: 40 MG 1 CP EN DESAYUNO
     Route: 048
     Dates: start: 2011, end: 20140515
  8. SIMVASTATIN. [Concomitant]
     Active Substance: SIMVASTATIN
     Dosage: 20 MG 1 TABLET WITH DINNER
  9. BISOPROLOL [Concomitant]
     Active Substance: BISOPROLOL
     Dosage: DOSE: 5 MG 1/2 TABLET WITH BREAKFAST AND 1/2 WITH DINNER
  10. HALOPERIDOL. [Concomitant]
     Active Substance: HALOPERIDOL

REACTIONS (3)
  - Chronic kidney disease [Fatal]
  - Hyponatraemia [Fatal]
  - Confusional state [Fatal]

NARRATIVE: CASE EVENT DATE: 20140510
